FAERS Safety Report 10028619 (Version 2)
Quarter: 2014Q2

REPORT INFORMATION
  Report Type: Spontaneous
  Country: IN (occurrence: IN)
  Receive Date: 20140321
  Receipt Date: 20140610
  Transmission Date: 20141212
  Serious: Yes (Other)
  Sender: FDA-Public Use
  Company Number: IN-GILEAD-2014-0097515

PATIENT
  Sex: Male

DRUGS (3)
  1. TRUVADA [Suspect]
     Indication: HIV INFECTION
     Route: 065
  2. REYATAZ [Suspect]
     Indication: HIV INFECTION
     Route: 065
  3. NORVIR [Suspect]
     Indication: HIV INFECTION
     Route: 065

REACTIONS (2)
  - Suicidal ideation [Unknown]
  - Depressed mood [Unknown]
